FAERS Safety Report 17938774 (Version 1)
Quarter: 2020Q2

REPORT INFORMATION
  Report Type: Spontaneous
  Country: DE (occurrence: DE)
  Receive Date: 20200625
  Receipt Date: 20200625
  Transmission Date: 20200714
  Serious: Yes (Hospitalization)
  Sender: FDA-Public Use
  Company Number: DE-TEVA-2020-DE-1790618

PATIENT
  Age: 80 Year
  Sex: Male

DRUGS (11)
  1. PRAVASTATIN. [Suspect]
     Active Substance: PRAVASTATIN
     Dosage: 20 MILLIGRAM DAILY;  0-0-1-0
     Route: 048
  2. NITRENDIPIN [Suspect]
     Active Substance: NITRENDIPINE
     Dosage: 40 MILLIGRAM DAILY; 1-0-1-0
     Route: 048
  3. PHENPROCOUMON [Concomitant]
     Active Substance: PHENPROCOUMON
     Dosage: 3 MG, BY VALUE
     Route: 048
  4. METOPROLOL. [Suspect]
     Active Substance: METOPROLOL
     Dosage: 95 MILLIGRAM DAILY;  1-0-1-0,
     Route: 048
  5. SYMBICORT 160MIKROGRAMM/4,5MIKROGRAMM [Concomitant]
     Dosage: 2 DOSAGE FORMS DAILY; 160 | 4.5 MCG, 1-0-1-0
     Route: 055
  6. TORASEMID [Suspect]
     Active Substance: TORSEMIDE
     Dosage: 4 DOSAGE FORMS DAILY; 10 MG, 2-2-0-0
     Route: 048
  7. ALLOPURINOL. [Concomitant]
     Active Substance: ALLOPURINOL
     Dosage: 300 MILLIGRAM DAILY; 1-0-0-0
     Route: 048
  8. NOVORAPID FLEXPEN 100EINHEITEN/ML 3ML [Concomitant]
     Dosage: 100 IU, 10-0-8-0
     Route: 058
  9. LEVEMIR FLEXPEN 100EINHEITEN/ML [Concomitant]
     Dosage: 100 IU, 0-0-0-8
     Route: 058
  10. DAXAS 500MIKROGRAMM [Concomitant]
     Dosage: 500 MICROGRAM DAILY; 1-0-0-0
     Route: 055
  11. TAMSULOSIN [Concomitant]
     Active Substance: TAMSULOSIN
     Dosage: .4 MILLIGRAM DAILY; 1-0-0-0
     Route: 048

REACTIONS (4)
  - Oedema peripheral [Unknown]
  - Dyspnoea [Unknown]
  - Arrhythmia [Unknown]
  - Acute respiratory failure [Unknown]
